FAERS Safety Report 5340072-3 (Version None)
Quarter: 2007Q2

REPORT INFORMATION
  Report Type: 
  Country: None (occurrence: None)
  Receive Date: 20070529
  Receipt Date: 20070518
  Transmission Date: 20071010
  Serious: Yes (Hospitalization)
  Sender: FDA-Public Use
  Company Number: 2007SP006582

PATIENT
  Age: 42 Year
  Sex: Male
  Weight: 78.0187 kg

DRUGS (4)
  1. TEMODAL [Suspect]
     Indication: GLIOBLASTOMA MULTIFORME
     Dosage: SEE IMAGE; PO
     Route: 048
     Dates: start: 20070309, end: 20070405
  2. TEMODAL [Suspect]
     Indication: GLIOBLASTOMA MULTIFORME
     Dosage: SEE IMAGE; PO
     Route: 048
     Dates: start: 20070401
  3. DECADRON [Suspect]
     Indication: BRAIN OEDEMA
     Dosage: 4 MG, QD; PO
     Route: 048
     Dates: start: 20070320
  4. DILANTIN [Concomitant]

REACTIONS (3)
  - DIARRHOEA [None]
  - PANCREATITIS [None]
  - TREATMENT NONCOMPLIANCE [None]
